FAERS Safety Report 13121804 (Version 1)
Quarter: 2017Q1

REPORT INFORMATION
  Report Type: Spontaneous
  Country: US (occurrence: US)
  Receive Date: 20170117
  Receipt Date: 20170117
  Transmission Date: 20170428
  Serious: Yes (Disabling)
  Sender: FDA-Public Use
  Company Number: None

PATIENT
  Age: 61 Year
  Sex: Female
  Weight: 56.75 kg

DRUGS (10)
  1. LATUDA [Suspect]
     Active Substance: LURASIDONE HYDROCHLORIDE
     Indication: BIPOLAR DISORDER
     Route: 048
  2. PANTRAZOLE [Concomitant]
  3. BENZTROPINE TABLETS [Concomitant]
  4. CITALOPRAM [Concomitant]
     Active Substance: CITALOPRAM HYDROBROMIDE
  5. VITAMIN B12 [Concomitant]
     Active Substance: CYANOCOBALAMIN
  6. GEODON [Concomitant]
     Active Substance: ZIPRASIDONE HYDROCHLORIDE\ZIPRASIDONE MESYLATE
  7. BIOTIN [Concomitant]
     Active Substance: BIOTIN
  8. LAMOTRIGINE. [Concomitant]
     Active Substance: LAMOTRIGINE
  9. BACLOFEN TABLETS [Concomitant]
     Active Substance: BACLOFEN
  10. E [Concomitant]

REACTIONS (1)
  - Tardive dyskinesia [None]
